FAERS Safety Report 7239561-6 (Version None)
Quarter: 2011Q1

REPORT INFORMATION
  Report Type: 
  Country: None (occurrence: None)
  Receive Date: 20110121
  Receipt Date: 20110111
  Transmission Date: 20110831
  Serious: Yes (Hospitalization)
  Sender: FDA-Public Use
  Company Number: SI-GENENTECH-312429

PATIENT
  Age: 38 Year
  Sex: Female
  Weight: 70 kg

DRUGS (5)
  1. AMLOPIN [Concomitant]
     Indication: HYPERTENSION
     Dosage: 10 MG, BID
     Route: 048
     Dates: start: 20090401
  2. MABTHERA [Suspect]
     Indication: SYSTEMIC LUPUS ERYTHEMATOSUS
     Dosage: 1000 MG, QAM
     Route: 042
     Dates: start: 20100406, end: 20100406
  3. MEDROL [Concomitant]
     Indication: SYSTEMIC LUPUS ERYTHEMATOSUS
     Dosage: 8 MG, QAM
     Route: 048
     Dates: start: 20100406
  4. CELLCEPT [Suspect]
     Indication: SYSTEMIC LUPUS ERYTHEMATOSUS
     Dosage: 500 MG, BID
     Route: 048
     Dates: start: 20100406, end: 20101015
  5. ATORIS [Concomitant]
     Indication: HYPERLIPIDAEMIA
     Dosage: 20 MG, QAM
     Route: 048
     Dates: start: 20090401

REACTIONS (2)
  - GRANULOCYTOPENIA [None]
  - LEUKOPENIA [None]
